FAERS Safety Report 6347336-5 (Version None)
Quarter: 2009Q3

REPORT INFORMATION
  Report Type: 
  Country: None (occurrence: None)
  Receive Date: 20090908
  Receipt Date: 20090908
  Transmission Date: 20100115
  Serious: No
  Sender: FDA-Public Use
  Company Number: None

PATIENT
  Age: 50 Year
  Sex: Male
  Weight: 67 kg

DRUGS (1)
  1. ETRAVIRINE [Suspect]
     Indication: URTICARIA
     Dosage: 200MG BID PO
     Route: 048
     Dates: start: 20090626, end: 20090626

REACTIONS (3)
  - NAUSEA [None]
  - NEUROPATHY PERIPHERAL [None]
  - VOMITING [None]
